FAERS Safety Report 4808588-3 (Version None)
Quarter: 2005Q4

REPORT INFORMATION
  Report Type: 
  Country: None (occurrence: None)
  Receive Date: 20051025
  Receipt Date: 20051013
  Transmission Date: 20060501
  Serious: Yes (Hospitalization)
  Sender: FDA-Public Use
  Company Number: FR-GLAXOSMITHKLINE-B0397629A

PATIENT
  Age: 26 Year
  Sex: Female
  Weight: 100 kg

DRUGS (1)
  1. SALBUMOL FORT [Suspect]
     Indication: UTERINE CONTRACTIONS ABNORMAL
     Dosage: 15MG SEE DOSAGE TEXT
     Route: 042
     Dates: start: 20050910, end: 20050910

REACTIONS (5)
  - CIRCULATORY COLLAPSE [None]
  - DRUG ADMINISTRATION ERROR [None]
  - DRUG EXPOSURE DURING PREGNANCY [None]
  - HYPOTENSION [None]
  - TACHYCARDIA [None]
